FAERS Safety Report 9099609 (Version 1)
Quarter: 2013Q1

REPORT INFORMATION
  Report Type: Spontaneous
  Country: US (occurrence: US)
  Receive Date: 20130214
  Receipt Date: 20130214
  Transmission Date: 20140127
  Serious: No
  Sender: FDA-Public Use
  Company Number: US-PFIZER INC-2013055499

PATIENT
  Age: 37 Year
  Sex: Male
  Weight: 215 kg

DRUGS (1)
  1. VIAGRA [Suspect]
     Indication: ERECTILE DYSFUNCTION
     Dosage: UNK, 3X/DAY
     Dates: start: 201301

REACTIONS (1)
  - Penis disorder [Not Recovered/Not Resolved]
